FAERS Safety Report 5520457-2 (Version None)
Quarter: 2007Q4

REPORT INFORMATION
  Report Type: 
  Country: None (occurrence: None)
  Receive Date: 20071119
  Receipt Date: 20071106
  Transmission Date: 20080405
  Serious: Yes (Other)
  Sender: FDA-Public Use
  Company Number: US-PFIZER INC-2007094582

PATIENT
  Sex: Female
  Weight: 75 kg

DRUGS (12)
  1. CHANTIX [Interacting]
     Indication: SMOKING CESSATION THERAPY
     Route: 048
  2. AMOXICILLIN [Interacting]
     Indication: SINUSITIS
  3. COMPAZINE [Suspect]
     Indication: STOMACH DISCOMFORT
  4. LEVAQUIN [Suspect]
     Indication: CYSTITIS
  5. SEPTRA DS [Suspect]
     Indication: CYSTITIS
  6. OXYCODONE HCL [Concomitant]
  7. ADVAIR DISKUS 100/50 [Concomitant]
  8. ALBUTEROL [Concomitant]
  9. ZANAFLEX [Concomitant]
  10. PROTONIX [Concomitant]
  11. DOCUSATE SODIUM [Concomitant]
  12. ALLEGRA D 24 HOUR [Concomitant]

REACTIONS (8)
  - CYSTITIS [None]
  - DRUG INEFFECTIVE [None]
  - DRUG INTERACTION [None]
  - FALL [None]
  - HAND FRACTURE [None]
  - NAUSEA [None]
  - SINUSITIS [None]
  - VOMITING [None]
